FAERS Safety Report 9810943 (Version 1)
Quarter: 2014Q1

REPORT INFORMATION
  Report Type: Spontaneous
  Country: US (occurrence: US)
  Receive Date: 20140110
  Receipt Date: 20140110
  Transmission Date: 20141002
  Serious: Yes (Other)
  Sender: FDA-Public Use
  Company Number: US-SANOFI-AVENTIS-2013SA021904

PATIENT
  Sex: 0

DRUGS (1)
  1. PLAVIX [Suspect]
     Dosage: PLAVIX WAS PRESCRIBED ON OR ABOUT 14-FEB-2006?AND CONTINUED ON PLAVIX UNTIL ON OR ABOUT 14-JAN-2011
     Dates: start: 2006, end: 2011

REACTIONS (1)
  - Cerebral haemorrhage [Unknown]
